FAERS Safety Report 12817175 (Version 1)
Quarter: 2016Q4

REPORT INFORMATION
  Report Type: Spontaneous
  Country: US (occurrence: US)
  Receive Date: 20161005
  Receipt Date: 20161005
  Transmission Date: 20170207
  Serious: Yes (Other)
  Sender: FDA-Public Use
  Company Number: None

PATIENT
  Age: 64 Year
  Sex: Female
  Weight: 90 kg

DRUGS (1)
  1. HYOSCYAMINE. [Suspect]
     Active Substance: HYOSCYAMINE
     Indication: ABDOMINAL RIGIDITY
     Dosage: ?          OTHER FREQUENCY:2-4 HOURS PRN;?
     Route: 048
     Dates: start: 20160311, end: 20160930

REACTIONS (3)
  - Product use issue [None]
  - Haematochezia [None]
  - Hypoaesthesia [None]

NARRATIVE: CASE EVENT DATE: 20160815
